FAERS Safety Report 23259832 (Version 1)
Quarter: 2023Q4

REPORT INFORMATION
  Report Type: Report from Study
  Country: US (occurrence: US)
  Receive Date: 20231204
  Receipt Date: 20231204
  Transmission Date: 20240110
  Serious: No
  Sender: FDA-Public Use
  Company Number: US-ALXN-A202313293

PATIENT

DRUGS (1)
  1. STRENSIQ [Suspect]
     Active Substance: ASFOTASE ALFA
     Indication: Product used for unknown indication
     Dosage: UNK
     Route: 065

REACTIONS (15)
  - Arthralgia [Unknown]
  - Asthenia [Unknown]
  - Joint range of motion decreased [Unknown]
  - Blood urea increased [Unknown]
  - Joint stiffness [Unknown]
  - Vitamin B6 increased [Unknown]
  - Blood creatine phosphokinase increased [Unknown]
  - Malaise [Unknown]
  - Musculoskeletal stiffness [Unknown]
  - Muscular weakness [Unknown]
  - Synovial cyst [Unknown]
  - Varicose vein [Unknown]
  - Bone hypertrophy [Unknown]
  - Tenderness [Unknown]
  - Nodal osteoarthritis [Unknown]

NARRATIVE: CASE EVENT DATE: 20230425
